FAERS Safety Report 4544023-0 (Version None)
Quarter: 2005Q1

REPORT INFORMATION
  Report Type: 
  Country: None (occurrence: None)
  Receive Date: 20050104
  Receipt Date: 20041224
  Transmission Date: 20050727
  Serious: Yes (Hospitalization)
  Sender: FDA-Public Use
  Company Number: JP-MERCK-0412USA03004

PATIENT
  Age: 13 Month
  Sex: Male
  Weight: 9 kg

DRUGS (9)
  1. THEO-DUR [Suspect]
     Route: 048
     Dates: start: 20041001, end: 20041221
  2. [THERAPY UNSPECIFIED] [Concomitant]
     Route: 048
     Dates: start: 20040916, end: 20041221
  3. HOKUNALIN [Concomitant]
     Route: 065
     Dates: start: 20041001, end: 20041221
  4. ASCORBIC ACID [Concomitant]
     Route: 065
     Dates: start: 20041001, end: 20041221
  5. PERIACTIN [Suspect]
     Indication: RHINORRHOEA
     Route: 048
     Dates: start: 20040916, end: 20041221
  6. ASVERIN [Concomitant]
     Route: 048
     Dates: start: 20040916, end: 20041221
  7. MUCODYNE [Suspect]
     Route: 048
     Dates: start: 20040916, end: 20041221
  8. MUCOSOLVAN [Suspect]
     Route: 048
     Dates: start: 20040916, end: 20041221
  9. POLARAMINE [Suspect]
     Route: 065
     Dates: start: 20041001, end: 20041221

REACTIONS (1)
  - DEPRESSED LEVEL OF CONSCIOUSNESS [None]
